FAERS Safety Report 4339773-5 (Version None)
Quarter: 2004Q2

REPORT INFORMATION
  Report Type: 
  Country: None (occurrence: None)
  Receive Date: 20040416
  Receipt Date: 20030311
  Transmission Date: 20050107
  Serious: Yes (Other)
  Sender: FDA-Public Use
  Company Number: PHNU2003DE01270

PATIENT
  Age: 35 Year
  Sex: Male
  Weight: 68 kg

DRUGS (3)
  1. GLEEVEC [Suspect]
     Indication: GASTROINTESTINAL STROMAL TUMOUR
     Dosage: UNKNOWN
     Route: 048
     Dates: start: 20030115
  2. GLEEVEC [Suspect]
     Dosage: 600MG/DAY
     Route: 048
     Dates: start: 20020131, end: 20021201
  3. ASPIRIN [Concomitant]
     Dosage: UNKNOWN
     Route: 048
     Dates: start: 20021207, end: 20021201

REACTIONS (20)
  - ABNORMAL FAECES [None]
  - BLOOD CREATININE INCREASED [None]
  - BLOOD UREA INCREASED [None]
  - COMPUTERISED TOMOGRAM ABNORMAL [None]
  - DIZZINESS [None]
  - DYSPHAGIA [None]
  - EYE SWELLING [None]
  - GASTROOESOPHAGEAL REFLUX DISEASE [None]
  - HAEMOGLOBIN DECREASED [None]
  - HYPOAESTHESIA [None]
  - INTERVERTEBRAL DISC PROTRUSION [None]
  - NIGHT SWEATS [None]
  - NUCLEAR MAGNETIC RESONANCE IMAGING ABNORMAL [None]
  - OESOPHAGEAL DISORDER [None]
  - PAIN [None]
  - POLYURIA [None]
  - RENAL FAILURE ACUTE [None]
  - SWELLING FACE [None]
  - THIRST [None]
  - VOMITING [None]
